FAERS Safety Report 25118822 (Version 1)
Quarter: 2025Q1

REPORT INFORMATION
  Report Type: Spontaneous
  Country: US (occurrence: None)
  Receive Date: 20250324
  Receipt Date: 20250324
  Transmission Date: 20250408
  Serious: Yes (Disabling)
  Sender: FDA-CTU
  Company Number: None

PATIENT
  Age: 78 Year
  Sex: Female
  Weight: 68.04 kg

DRUGS (5)
  1. LABETALOL [Suspect]
     Active Substance: LABETALOL
     Dosage: 1 PILL ONCE A DAY TAKEN BY MOUTH ?
     Route: 048
     Dates: start: 20250302, end: 20250305
  2. Multivitamins + Omega-3 [Concomitant]
  3. Skin + Nails [Concomitant]
  4. PEPCID AC [Concomitant]
     Active Substance: FAMOTIDINE
  5. Dulcolax [Concomitant]

REACTIONS (7)
  - Headache [None]
  - Skin burning sensation [None]
  - Ear pain [None]
  - Ear discomfort [None]
  - Hypoacusis [None]
  - Hyperhidrosis [None]
  - Respiratory rate decreased [None]

NARRATIVE: CASE EVENT DATE: 20250302
